FAERS Safety Report 10669907 (Version 3)
Quarter: 2015Q1

REPORT INFORMATION
  Report Type: Spontaneous
  Country: US (occurrence: US)
  Receive Date: 20141222
  Receipt Date: 20150110
  Transmission Date: 20150720
  Serious: Yes (Hospitalization)
  Sender: FDA-Public Use
  Company Number: US-JNJFOC-20141208254

PATIENT
  Sex: Male
  Weight: 103.42 kg

DRUGS (8)
  1. DOXYCYCLINE HYCLATE. [Concomitant]
     Active Substance: DOXYCYCLINE HYCLATE
     Indication: DRUG HYPERSENSITIVITY
     Route: 048
  2. BENADRYL [Suspect]
     Active Substance: DIPHENHYDRAMINE HYDROCHLORIDE
     Indication: DRUG HYPERSENSITIVITY
     Route: 048
  3. BENADRYL [Suspect]
     Active Substance: DIPHENHYDRAMINE HYDROCHLORIDE
     Indication: PRURITUS
     Route: 048
  4. CEPHALEXIN. [Concomitant]
     Active Substance: CEPHALEXIN
     Indication: DRUG HYPERSENSITIVITY
     Route: 048
  5. ANTIBIOTICS [Concomitant]
     Active Substance: UNSPECIFIED INGREDIENT
     Indication: DRUG HYPERSENSITIVITY
     Route: 065
  6. AZOR [Concomitant]
     Active Substance: AMLODIPINE BESYLATE\OLMESARTAN MEDOXOMIL
     Indication: HYPERTENSION
     Dosage: 10MG/40MG??INTERVAL: 3 MONTHS
     Route: 065
     Dates: start: 201409
  7. METFORMIN [Concomitant]
     Active Substance: METFORMIN HYDROCHLORIDE
     Indication: DIABETES MELLITUS
     Dosage: INTERVAL: 1? YEAR
     Route: 065
     Dates: start: 201306
  8. ATORVASTATIN [Concomitant]
     Active Substance: ATORVASTATIN
     Indication: BLOOD CHOLESTEROL INCREASED
     Dosage: INTERVAL: 3 MONTHS
     Route: 065
     Dates: start: 201409

REACTIONS (8)
  - Somnolence [Recovering/Resolving]
  - Inappropriate schedule of drug administration [Unknown]
  - Wound drainage [Recovering/Resolving]
  - Drug ineffective for unapproved indication [Unknown]
  - Skin exfoliation [Recovering/Resolving]
  - Furuncle [Recovering/Resolving]
  - Product use issue [Unknown]
  - Euphoric mood [Recovering/Resolving]
